FAERS Safety Report 24675135 (Version 1)
Quarter: 2024Q4

REPORT INFORMATION
  Report Type: Spontaneous
  Country: US (occurrence: US)
  Receive Date: 20241128
  Receipt Date: 20241128
  Transmission Date: 20250115
  Serious: Yes (Hospitalization, Other)
  Sender: BRISTOL-MYERS SQUIBB COMPANY
  Company Number: US-BRISTOL-MYERS SQUIBB COMPANY-2024-181800

PATIENT
  Age: 76 Year
  Sex: Female

DRUGS (2)
  1. NIVOLUMAB [Suspect]
     Active Substance: NIVOLUMAB
     Indication: Papillary thyroid cancer
  2. IPILIMUMAB [Suspect]
     Active Substance: IPILIMUMAB
     Indication: Papillary thyroid cancer

REACTIONS (2)
  - Immune-mediated hypophysitis [Recovering/Resolving]
  - Off label use [Unknown]
